FAERS Safety Report 6664795-9 (Version None)
Quarter: 2010Q1

REPORT INFORMATION
  Report Type: 
  Country: None (occurrence: None)
  Receive Date: 20100330
  Receipt Date: 20100317
  Transmission Date: 20100710
  Serious: Yes (Hospitalization)
  Sender: FDA-Public Use
  Company Number: 002818

PATIENT

DRUGS (3)
  1. NEUPRO [Suspect]
     Indication: PARKINSON'S DISEASE
     Dosage: (2 MG QD TRANSDERMAL), (4 MG QD TRANSCERMAL), (6 MG TRANSDERMAL) , (8 MG QD TRANSDERMAL)
     Route: 062
     Dates: start: 20080717, end: 20080725
  2. NEUPRO [Suspect]
     Indication: PARKINSON'S DISEASE
     Dosage: (2 MG QD TRANSDERMAL), (4 MG QD TRANSCERMAL), (6 MG TRANSDERMAL) , (8 MG QD TRANSDERMAL)
     Route: 062
     Dates: start: 20080726, end: 20080802
  3. NEUPRO [Suspect]
     Indication: PARKINSON'S DISEASE
     Dosage: (2 MG QD TRANSDERMAL), (4 MG QD TRANSCERMAL), (6 MG TRANSDERMAL) , (8 MG QD TRANSDERMAL)
     Route: 062
     Dates: start: 20080803, end: 20080815

REACTIONS (1)
  - LIVING IN RESIDENTIAL INSTITUTION [None]
